FAERS Safety Report 5811414-7 (Version None)
Quarter: 2008Q3

REPORT INFORMATION
  Report Type: 
  Country: None (occurrence: None)
  Receive Date: 20080716
  Receipt Date: 20080707
  Transmission Date: 20090109
  Serious: Yes (Hospitalization)
  Sender: FDA-Public Use
  Company Number: NL-JNJFOC-20080403817

PATIENT
  Age: 77 Year
  Weight: 72 kg

DRUGS (7)
  1. DOXORUBICIN HYDROCHLORIDE [Suspect]
     Indication: BREAST CANCER METASTATIC
     Dosage: 160 MG CUMULATIVE DOSE
     Route: 042
  2. ESOMEPRAZOLE MAGNESIUM [Concomitant]
  3. SIMVASTATIN [Concomitant]
  4. ASCAL [Concomitant]
  5. HYDROCHLOROTHIAZIDE [Concomitant]
  6. ATENOLOL [Concomitant]
  7. OXYCODONE HCL [Concomitant]

REACTIONS (6)
  - ABDOMINAL PAIN UPPER [None]
  - DEHYDRATION [None]
  - DEPRESSED LEVEL OF CONSCIOUSNESS [None]
  - HYDRONEPHROSIS [None]
  - URINE OUTPUT DECREASED [None]
  - UROSEPSIS [None]
